FAERS Safety Report 9237508 (Version 2)
Quarter: 2013Q2

REPORT INFORMATION
  Report Type: Spontaneous
  Country: US (occurrence: US)
  Receive Date: 20130417
  Receipt Date: 20130628
  Transmission Date: 20140414
  Serious: Yes (Other)
  Sender: FDA-Public Use
  Company Number: US-009507513-1304USA004017

PATIENT
  Sex: Male
  Weight: 99.32 kg

DRUGS (12)
  1. PRINIVIL [Suspect]
     Indication: CARDIAC DISORDER
     Dosage: 40 MG, BID
     Route: 048
  2. MEVACOR TABLET [Interacting]
     Indication: CARDIAC DISORDER
     Dosage: UNK
     Route: 048
  3. CHANTIX [Interacting]
     Indication: EX-TOBACCO USER
     Dosage: UNK MG, UNK
     Route: 048
     Dates: end: 2009
  4. ATENOLOL [Interacting]
     Indication: CARDIAC DISORDER
     Dosage: 50 MG, UNK
  5. METFORMIN [Interacting]
     Indication: DIABETES MELLITUS
     Dosage: 850 MG, BID
  6. FLUOXETINE [Interacting]
     Indication: NERVOUSNESS
     Dosage: 20 MG, BID
  7. OMEPRAZOLE [Interacting]
     Indication: GASTROINTESTINAL DISORDER
     Dosage: 20 MG, BID
  8. HALOPERIDOL [Interacting]
     Indication: NERVOUSNESS
     Dosage: ONE PILL AT MORNING
     Route: 048
  9. LITHIUM CARBONATE [Interacting]
     Indication: NERVOUSNESS
     Dosage: 300 MG, UNK
  10. GEMFIBROZIL [Interacting]
     Indication: PRODUCT USED FOR UNKNOWN INDICATION
     Dosage: 60 MG, BID
  11. NITROGLYCERIN [Interacting]
     Indication: CHEST PAIN
     Dosage: UNK
  12. NIFEDIPINE [Interacting]
     Indication: CARDIAC DISORDER
     Dosage: 30 MG, UNK

REACTIONS (9)
  - Loss of consciousness [Unknown]
  - Chest pain [Recovering/Resolving]
  - Aggression [Recovering/Resolving]
  - Mood swings [Recovering/Resolving]
  - Insomnia [Recovering/Resolving]
  - Thinking abnormal [Recovering/Resolving]
  - Abnormal behaviour [Recovering/Resolving]
  - Disturbance in attention [Recovering/Resolving]
  - Drug interaction [Unknown]
